FAERS Safety Report 5359602-0 (Version None)
Quarter: 2007Q2

REPORT INFORMATION
  Report Type: 
  Country: None (occurrence: None)
  Receive Date: 20070615
  Receipt Date: 20070531
  Transmission Date: 20071010
  Serious: Yes (Disabling)
  Sender: FDA-Public Use
  Company Number: DE-SHR-DE-2006-006968

PATIENT
  Sex: Male

DRUGS (2)
  1. REFLUDAN [Suspect]
     Dates: end: 20060301
  2. ARGATROBAN [Suspect]
     Indication: HEPARIN-INDUCED THROMBOCYTOPENIA
     Dates: start: 20060301

REACTIONS (2)
  - BLINDNESS [None]
  - THROMBOSIS [None]
